FAERS Safety Report 6589994-6 (Version None)
Quarter: 2010Q1

REPORT INFORMATION
  Report Type: 
  Country: None (occurrence: None)
  Receive Date: 20100219
  Receipt Date: 20100208
  Transmission Date: 20100710
  Serious: Yes (Other)
  Sender: FDA-Public Use
  Company Number: PHHY2009BR41134

PATIENT
  Sex: Female
  Weight: 75 kg

DRUGS (7)
  1. DIOVAN [Suspect]
     Indication: HYPERTENSION
     Dosage: 1 TABLET DAILY
     Route: 048
     Dates: start: 20090301
  2. DIOVAN [Suspect]
     Dosage: 160 MG, UNK
     Dates: start: 20090918
  3. DIOVAN [Suspect]
     Dosage: 80 MG, UNK
  4. LEVOTHYROXINE SODIUM [Concomitant]
     Indication: HYPOTHYROIDISM
     Dosage: 1 TABLET DAILY
     Route: 048
  5. DIAMICRON MR [Concomitant]
     Indication: DIABETES MELLITUS
     Dosage: 1 TABLET AFTER BREAKFAST
     Route: 048
     Dates: start: 20090301
  6. BROMAZEPAM [Concomitant]
     Indication: BLOOD PRESSURE
     Dosage: HALF TABLET AT NIGHT
     Route: 048
  7. CHAMOMILLA RECUTITA [Concomitant]

REACTIONS (11)
  - AMNESIA [None]
  - BLOOD PRESSURE INCREASED [None]
  - HEAD DISCOMFORT [None]
  - INSOMNIA [None]
  - NERVOUSNESS [None]
  - PAIN IN EXTREMITY [None]
  - POOR PERIPHERAL CIRCULATION [None]
  - RENAL PAIN [None]
  - SOMNOLENCE [None]
  - VEIN DISORDER [None]
  - VENOUS VALVE RUPTURED [None]
